FAERS Safety Report 9893854 (Version 1)
Quarter: 2014Q1

REPORT INFORMATION
  Report Type: Spontaneous
  Country: US (occurrence: US)
  Receive Date: 20140213
  Receipt Date: 20140213
  Transmission Date: 20141002
  Serious: No
  Sender: FDA-Public Use
  Company Number: US-BAYER-2014-022703

PATIENT
  Age: 59 Year
  Sex: Female
  Weight: 56.69 kg

DRUGS (2)
  1. ALEVE TABLET [Suspect]
     Indication: ARTHRITIS
     Dosage: 1 DF, QD
     Route: 048
     Dates: start: 20131223, end: 20131224
  2. LOVAZA [Concomitant]

REACTIONS (1)
  - Dyspepsia [Recovered/Resolved]
